FAERS Safety Report 10078610 (Version 1)
Quarter: 2014Q2

REPORT INFORMATION
  Report Type: Spontaneous
  Country: US (occurrence: US)
  Receive Date: 20140415
  Receipt Date: 20140415
  Transmission Date: 20141212
  Serious: No
  Sender: FDA-Public Use
  Company Number: US-009507513-1404USA002089

PATIENT
  Sex: Female

DRUGS (11)
  1. PEGINTRON [Suspect]
     Indication: HEPATITIS C
     Dosage: REDIPEN, 0.5ML, Q7DAYS
     Dates: start: 20140324
  2. REBETOL [Suspect]
     Dosage: 1200 MG, BID
     Route: 048
     Dates: start: 20140331
  3. SOVALDI [Concomitant]
     Dosage: UNK, QD
  4. GABAPENTIN [Concomitant]
     Dosage: UNK, TID
  5. CARISOPRODOL [Concomitant]
     Dosage: UNK, TID
  6. PRILOSEC [Concomitant]
     Dosage: UNK, QD
  7. VITAMIN D (UNSPECIFIED) [Concomitant]
     Dosage: UNK, QW
  8. ENALAPRIL [Concomitant]
     Dosage: UNK, QD
  9. PERCOCET [Concomitant]
     Dosage: 7.5MG/325MG
  10. KETOPROFEN [Concomitant]
     Dosage: UNK, TID
  11. XANAX [Concomitant]
     Dosage: BID

REACTIONS (8)
  - Arthritis [Unknown]
  - Skin discolouration [Unknown]
  - Gastrooesophageal reflux disease [Unknown]
  - Vitamin D deficiency [Unknown]
  - Nervousness [Unknown]
  - Back disorder [Unknown]
  - Injection site erythema [Unknown]
  - Injection site discolouration [Unknown]
